APPROVED DRUG PRODUCT: PALONOSETRON HYDROCHLORIDE
Active Ingredient: PALONOSETRON HYDROCHLORIDE
Strength: EQ 0.25MG BASE/2ML (EQ 0.125MG BASE/ML)
Dosage Form/Route: SOLUTION;INTRAVENOUS
Application: N207963 | Product #001
Applicant: HIKMA PHARMACEUTICALS LLC
Approved: Aug 22, 2016 | RLD: No | RS: No | Type: DISCN